FAERS Safety Report 10449217 (Version 3)
Quarter: 2014Q4

REPORT INFORMATION
  Report Type: Spontaneous
  Country: HU (occurrence: None)
  Receive Date: 20140910
  Receipt Date: 20141014
  Transmission Date: 20150528
  Serious: Yes (Hospitalization, Other)
  Sender: FDA-Public Use
  Company Number: 2014-20290

PATIENT
  Age: 60 Year
  Sex: Male

DRUGS (31)
  1. GLICLAZIDE (GLICLAZIDE) [Concomitant]
     Active Substance: GLICLAZIDE
  2. KALDYM (POTASSIUM CHLORIDE) [Concomitant]
  3. CONCOR 5 PLUS (BISOPROLOL FUMARATE, HYDROCHLOROTHIAZIDE) [Concomitant]
  4. PANTOPRAZOLE (PANTOPRAZOLE) [Concomitant]
     Active Substance: PANTOPRAZOLE SODIUM
  5. CLEXANE (ENOXAPARIN SODIUM) [Concomitant]
     Active Substance: ENOXAPARIN SODIUM
  6. BETADIN (POVIDONE-IODINE) [Concomitant]
  7. BETALAC /00376902/ (METAPROLOL TARTRATE) [Concomitant]
  8. BETALOC ZOK PLUS (HYDORCHLOROTHIAZIDE, METOPROLOL SUCCINATE) [Concomitant]
  9. DEPRESSAN (DIHYDRALAZINE SULFATE) [Concomitant]
  10. ASA (ACETYLASALICYLIC ACID) [Concomitant]
  11. DIAPREL (GLICLAZIDE) [Concomitant]
  12. VEGF TRAP-EYE OR LASER TREATMENT (CODE NOT BROKEN) [Suspect]
     Active Substance: AFLIBERCEPT
     Indication: DIABETIC RETINAL OEDEMA
     Dosage: 2 MG MILLIGRAM(S), Q4, INTRAOCULAR
     Route: 031
     Dates: start: 20111123, end: 20140703
  13. HUMACAIN (OXYBUPROCAINE HYDROCHLORIDE) [Concomitant]
  14. RANIBIZUMAB (RANIBIZUMAB) [Concomitant]
  15. NEO SYNEPHRIN (PHENYLEPHRINE HYDROCHLORIDE) [Concomitant]
  16. TENOX /00393701/ (TEMAZEPAM) [Concomitant]
  17. CONTROLOC /01263201/ (PANTOPRAZOLE) [Concomitant]
  18. AMLODIPINE BESILATE W/TELMISARTAN (AMLODIPINE BESILATE, TELMISARTAN) [Concomitant]
  19. CUSIMOLOL (TIMOLOL MALEATE) [Concomitant]
  20. ASPIRIN PROTECT (ACETYLSALICYLIC ACID) [Concomitant]
  21. MEFORAL /00082701/ METFORMIN) [Concomitant]
  22. BENZALKONIUM CHLORIDE (BENZALKONIUM CHLORIDE) [Concomitant]
  23. HUMULIN R (INSULIN HUMAN) [Concomitant]
  24. PLAVIX [Concomitant]
     Active Substance: CLOPIDOGREL BISULFATE
  25. INDAPAMIDE (INDAPAMIDE) [Concomitant]
     Active Substance: INDAPAMIDE
  26. METFORGAMMA (METFORMIN HYDROCHLORIDE) [Concomitant]
  27. DOXIUM (CALCIUM DOBESILATE) [Concomitant]
  28. FLUORESCEIN (FLUORESCEIN) [Concomitant]
  29. MYDRUM (TROPICAMIDE) [Concomitant]
  30. ATORVASTATIN (ATORVASTATIN) [Concomitant]
     Active Substance: ATORVASTATIN
  31. EDNYT (ENALAPRIL MALEATE) [Concomitant]

REACTIONS (6)
  - Myocardial ischaemia [None]
  - Chondropathy [None]
  - Coronary artery stenosis [None]
  - Renal cyst [None]
  - Diabetic neuropathy [None]
  - Gout [None]

NARRATIVE: CASE EVENT DATE: 201304
